FAERS Safety Report 9143061 (Version 2)
Quarter: 2013Q2

REPORT INFORMATION
  Report Type: Spontaneous
  Country: DE (occurrence: DE)
  Receive Date: 20130306
  Receipt Date: 20130516
  Transmission Date: 20140414
  Serious: No
  Sender: FDA-Public Use
  Company Number: DE-JNJFOC-20130215821

PATIENT
  Age: 41 Year
  Sex: Female
  Weight: 58.05 kg

DRUGS (1)
  1. XARELTO [Suspect]
     Indication: THROMBOSIS
     Route: 048
     Dates: start: 201211

REACTIONS (1)
  - Antiphospholipid antibodies positive [Unknown]
